FAERS Safety Report 6483166-1 (Version None)
Quarter: 2009Q4

REPORT INFORMATION
  Report Type: 
  Country: None (occurrence: None)
  Receive Date: 20091208
  Receipt Date: 20091208
  Transmission Date: 20100525
  Serious: Yes (Hospitalization)
  Sender: FDA-Public Use
  Company Number: None

PATIENT
  Age: 55 Year
  Sex: Male
  Weight: 148 kg

DRUGS (1)
  1. DIAZEPAM [Suspect]
     Indication: BIPOLAR I DISORDER
     Dosage: 10 MG QID PO
     Route: 048
     Dates: start: 20090202, end: 20090222

REACTIONS (3)
  - DROOLING [None]
  - LETHARGY [None]
  - MENTAL STATUS CHANGES [None]
